FAERS Safety Report 10046228 (Version 1)
Quarter: 2014Q1

REPORT INFORMATION
  Report Type: Spontaneous
  Country: US (occurrence: None)
  Receive Date: 20140326
  Receipt Date: 20140326
  Transmission Date: 20141002
  Serious: Yes (Hospitalization)
  Sender: FDA-Public Use
  Company Number: SYM-2014-18854

PATIENT
  Age: 63 Year
  Sex: Female

DRUGS (4)
  1. FLUOROURACIL [Suspect]
     Indication: RECTAL CANCER
  2. OXALIPLATIN [Suspect]
     Indication: RECTAL CANCER
  3. LEUCOVORIN [Suspect]
     Indication: RECTAL CANCER
  4. BEVACIZUMAB [Suspect]
     Indication: RECTAL CANCER

REACTIONS (1)
  - Arrhythmia [None]
